FAERS Safety Report 6468207-X (Version None)
Quarter: 2009Q4

REPORT INFORMATION
  Report Type: 
  Country: None (occurrence: None)
  Receive Date: 20091130
  Receipt Date: 20091117
  Transmission Date: 20100525
  Serious: Yes (Hospitalization)
  Sender: FDA-Public Use
  Company Number: 2009AM000477

PATIENT
  Age: 62 Year
  Sex: Female

DRUGS (5)
  1. SYMLIN [Suspect]
     Indication: DIABETES MELLITUS
     Dosage: 120 MCG; TID; SC
     Route: 058
     Dates: start: 20090901
  2. SYMLIN [Suspect]
     Dosage: 60 MCG;TID;SC
     Route: 058
     Dates: start: 20090630, end: 20090901
  3. LANTUS [Concomitant]
  4. CARDIAC THERAPY [Concomitant]
  5. ANTIDEPRESSANTS [Concomitant]

REACTIONS (12)
  - BLOOD GLUCOSE INCREASED [None]
  - DECREASED APPETITE [None]
  - FALL [None]
  - GASTROENTERITIS VIRAL [None]
  - HEART RATE DECREASED [None]
  - HYPERHIDROSIS [None]
  - HYPOGLYCAEMIA [None]
  - INJURY ASSOCIATED WITH DEVICE [None]
  - LOSS OF CONSCIOUSNESS [None]
  - NAUSEA [None]
  - RESPIRATORY GAS EXCHANGE DISORDER [None]
  - SLEEP APNOEA SYNDROME [None]
